FAERS Safety Report 5828679-8 (Version None)
Quarter: 2008Q3

REPORT INFORMATION
  Report Type: 
  Country: None (occurrence: None)
  Receive Date: 20080731
  Receipt Date: 20080722
  Transmission Date: 20090109
  Serious: Yes (Hospitalization)
  Sender: FDA-Public Use
  Company Number: DE-BRISTOL-MYERS SQUIBB COMPANY-14262281

PATIENT
  Age: 65 Year
  Sex: Male

DRUGS (5)
  1. CETUXIMAB [Suspect]
     Indication: NON-SMALL CELL LUNG CANCER
     Dosage: RECENT INFUSION - 25JUN08, STRENGTH 5 MG/ML
     Route: 042
     Dates: start: 20080416
  2. CARBOPLATIN [Suspect]
     Indication: NON-SMALL CELL LUNG CANCER
     Dosage: RECENT INFUSION - 25JUN08, AUC5
     Route: 042
     Dates: start: 20080416
  3. DOCETAXEL [Suspect]
     Indication: NON-SMALL CELL LUNG CANCER
     Dosage: RECENT INFUSION - 25JUN08
     Route: 042
     Dates: start: 20080416
  4. BELOC-ZOK [Concomitant]
     Indication: HYPERTENSION
     Route: 048
  5. PANTOPRAZOLE SODIUM [Concomitant]
     Indication: PROPHYLAXIS
     Route: 048

REACTIONS (1)
  - ANAEMIA [None]
